FAERS Safety Report 13650268 (Version 1)
Quarter: 2017Q2

REPORT INFORMATION
  Report Type: Spontaneous
  Country: US (occurrence: US)
  Receive Date: 20170614
  Receipt Date: 20170614
  Transmission Date: 20170830
  Serious: No
  Sender: FDA-Public Use
  Company Number: US-ENDO PHARMACEUTICALS INC-2016-007386

PATIENT
  Sex: Female

DRUGS (1)
  1. GILDESS FE TABLETS [Suspect]
     Active Substance: ETHINYL ESTRADIOL\NORETHINDRONE ACETATE
     Indication: CONTRACEPTION
     Dosage: 1 DF, DAILY
     Route: 048
     Dates: start: 2013, end: 2016

REACTIONS (4)
  - Abortion induced [Unknown]
  - Product quality issue [Unknown]
  - Unintended pregnancy [Unknown]
  - Drug ineffective [Unknown]
